FAERS Safety Report 7671195-1 (Version None)
Quarter: 2011Q3

REPORT INFORMATION
  Report Type: 
  Country: None (occurrence: None)
  Receive Date: 20110809
  Receipt Date: 20110803
  Transmission Date: 20111222
  Serious: Yes (Hospitalization)
  Sender: FDA-Public Use
  Company Number: JP-B.I. PHARMACEUTICALS,INC./RIDGEFIELD-2011-BP-19187NB

PATIENT
  Age: 74 Year
  Sex: Male

DRUGS (1)
  1. SPIRIVA [Suspect]
     Route: 048
     Dates: start: 20110728

REACTIONS (4)
  - INCORRECT ROUTE OF DRUG ADMINISTRATION [None]
  - PYREXIA [None]
  - PNEUMONIA [None]
  - RASH [None]
